FAERS Safety Report 8974804 (Version 1)
Quarter: 2012Q4

REPORT INFORMATION
  Report Type: 
  Country: JP (occurrence: JP)
  Receive Date: 20121219
  Receipt Date: 20121219
  Transmission Date: 20130627
  Serious: Yes (Other)
  Sender: FDA-Public Use
  Company Number: JP-MYLANLABS-2012S1025380

PATIENT
  Age: 7 None
  Sex: Female

DRUGS (2)
  1. FLUDARABINE [Suspect]
     Indication: T-CELL PROLYMPHOCYTIC LEUKAEMIA
     Dosage: 25 mg/m2/day for 5d (after diagnosis of T-PLL)
     Route: 065
  2. FLUDARABINE [Suspect]
     Indication: T-CELL PROLYMPHOCYTIC LEUKAEMIA
     Dosage: 25 mg/m2/day for 3d (after an exacerbation of T-PLL was considered)
     Route: 065

REACTIONS (1)
  - Hodgkin^s disease [Recovering/Resolving]
